FAERS Safety Report 5610989-0 (Version None)
Quarter: 2008Q1

REPORT INFORMATION
  Report Type: 
  Country: None (occurrence: None)
  Receive Date: 20080201
  Receipt Date: 20080124
  Transmission Date: 20080703
  Serious: Yes (Hospitalization)
  Sender: FDA-Public Use
  Company Number: A0667726A

PATIENT
  Age: 62 Year
  Sex: Female
  Weight: 67.3 kg

DRUGS (2)
  1. LAPATINIB [Suspect]
     Indication: BREAST CANCER
     Dosage: 1500MG PER DAY
     Route: 048
     Dates: start: 20070111
  2. OMEPRAZOLE [Concomitant]
     Indication: PROPHYLAXIS
     Dosage: 2MG TWICE PER DAY
     Route: 042
     Dates: start: 20070801, end: 20070802

REACTIONS (3)
  - CELLULITIS [None]
  - SKIN TOXICITY [None]
  - TREATMENT NONCOMPLIANCE [None]
